FAERS Safety Report 6760430-X (Version None)
Quarter: 2010Q2

REPORT INFORMATION
  Report Type: 
  Country: None (occurrence: None)
  Receive Date: 20100608
  Receipt Date: 20100526
  Transmission Date: 20101027
  Serious: Yes (Other)
  Sender: FDA-Public Use
  Company Number: PHHY2010BR34011

PATIENT
  Age: 69 Year
  Sex: Female
  Weight: 70 kg

DRUGS (6)
  1. FORASEQ [Suspect]
     Indication: BRONCHIAL DISORDER
     Dosage: 1 DF DAILY
     Dates: start: 20090101
  2. FORASEQ [Suspect]
     Dosage: 1 DF DAILY
     Dates: start: 20100517
  3. BUDECORT AQUA [Concomitant]
     Dosage: 1 DF, BID
  4. ABRILAR [Concomitant]
  5. ENALAPRIL [Concomitant]
     Dosage: 10 MG
  6. CLORANA [Concomitant]
     Dosage: 25 MG

REACTIONS (4)
  - BRONCHITIS [None]
  - COUGH [None]
  - MALAISE [None]
  - THYROID DISORDER [None]
